FAERS Safety Report 7654443-3 (Version None)
Quarter: 2011Q3

REPORT INFORMATION
  Report Type: 
  Country: None (occurrence: None)
  Receive Date: 20110803
  Receipt Date: 20110803
  Transmission Date: 20111222
  Serious: Yes (Hospitalization, Other)
  Sender: FDA-Public Use
  Company Number: JP-PFIZER INC-2011170006

PATIENT
  Age: 74 Year
  Sex: Male

DRUGS (7)
  1. ETODOLAC [Concomitant]
     Dosage: UNK
     Dates: end: 20110321
  2. RHEUMATREX [Suspect]
     Indication: RHEUMATOID ARTHRITIS
     Dosage: 8 MG, WEEKLY
  3. AZULFIDINE [Suspect]
     Dosage: 1000  MG, 1X/DAY
     Dates: start: 20110209, end: 20110321
  4. PREDNISOLONE [Concomitant]
     Dosage: 5 MG, 1X/DAY
  5. AZULFIDINE [Suspect]
     Indication: RHEUMATOID ARTHRITIS
     Dosage: 500 MG, 1X/DAY
     Route: 048
     Dates: start: 20110104, end: 20110321
  6. RHEUMATREX [Suspect]
     Dosage: 4 MG, UNK
  7. RHEUMATREX [Suspect]
     Dosage: 6 MG, UNK
     Dates: start: 20110312, end: 20110321

REACTIONS (3)
  - GRANULOCYTOPENIA [None]
  - DUODENAL ULCER [None]
  - ACUTE TONSILLITIS [None]
